FAERS Safety Report 8090660-9 (Version None)
Quarter: 2012Q1

REPORT INFORMATION
  Report Type: 
  Country: None (occurrence: None)
  Receive Date: 20120129
  Receipt Date: 20111207
  Transmission Date: 20120608
  Serious: No
  Sender: FDA-Public Use
  Company Number: US-ABBOTT-11P-163-0881648-00

PATIENT
  Sex: Female
  Weight: 58.112 kg

DRUGS (8)
  1. HUMIRA [Suspect]
     Route: 058
     Dates: start: 20110802, end: 20110802
  2. PREDNISONE TAB [Concomitant]
     Indication: CROHN'S DISEASE
     Dates: end: 20111001
  3. ASACOL [Concomitant]
     Indication: CROHN'S DISEASE
  4. ZOLOFT [Concomitant]
     Indication: DEPRESSION
  5. HUMIRA [Suspect]
     Indication: CROHN'S DISEASE
     Route: 058
     Dates: start: 20110719, end: 20110719
  6. HUMIRA [Suspect]
     Route: 058
     Dates: start: 20110816
  7. XANAX [Concomitant]
     Indication: ANXIETY
  8. XANAX [Concomitant]
     Indication: MENSTRUAL DISORDER

REACTIONS (1)
  - RASH PRURITIC [None]
